FAERS Safety Report 9171279 (Version 2)
Quarter: 2013Q4

REPORT INFORMATION
  Report Type: Report from Study
  Country: US (occurrence: US)
  Receive Date: 20130319
  Receipt Date: 20131227
  Transmission Date: 20140711
  Serious: Yes (Hospitalization)
  Sender: FDA-Public Use
  Company Number: US-ALEXION-A201300430

PATIENT
  Age: 45 Year
  Sex: Female
  Weight: 78.91 kg

DRUGS (4)
  1. SOLIRIS [Suspect]
     Indication: PAROXYSMAL NOCTURNAL HAEMOGLOBINURIA
     Dosage: UNK
     Route: 042
     Dates: start: 2007
  2. SOLIRIS [Suspect]
     Dosage: UNK
     Route: 042
  3. SOLIRIS [Suspect]
     Dosage: UNK
     Dates: start: 20130307
  4. LOVENOX [Concomitant]
     Indication: ANTICOAGULANT THERAPY

REACTIONS (2)
  - Subclavian vein thrombosis [Recovering/Resolving]
  - Pulmonary embolism [Recovering/Resolving]
